FAERS Safety Report 16251332 (Version 2)
Quarter: 2019Q2

REPORT INFORMATION
  Report Type: Spontaneous
  Country: NL (occurrence: NL)
  Receive Date: 20190429
  Receipt Date: 20190604
  Transmission Date: 20190711
  Serious: Yes (Congenital Anomaly)
  Sender: FDA-Public Use
  Company Number: NL-ROCHE-2307461

PATIENT
  Sex: Male
  Weight: 6.3 kg

DRUGS (1)
  1. XOLAIR [Suspect]
     Active Substance: OMALIZUMAB
     Indication: PRODUCT USED FOR UNKNOWN INDICATION
     Dosage: MATERNAL DOSE: 225 MG
     Route: 064

REACTIONS (2)
  - Accessory auricle [Not Recovered/Not Resolved]
  - Foetal exposure during pregnancy [Unknown]
